FAERS Safety Report 25543574 (Version 3)
Quarter: 2025Q3

REPORT INFORMATION
  Report Type: Spontaneous
  Country: JP (occurrence: JP)
  Receive Date: 20250711
  Receipt Date: 20250913
  Transmission Date: 20251021
  Serious: Yes (Death, Other)
  Sender: UCB
  Company Number: JP-UCBJ-CD202509047UCBPHAPROD

PATIENT
  Age: 11 Year
  Sex: Female

DRUGS (1)
  1. FINTEPLA [Suspect]
     Active Substance: FENFLURAMINE
     Indication: Lennox-Gastaut syndrome
     Route: 048
     Dates: start: 20240906

REACTIONS (2)
  - Respiratory failure [Fatal]
  - Pneumonia [Fatal]
